FAERS Safety Report 23334404 (Version 1)
Quarter: 2023Q4

REPORT INFORMATION
  Report Type: Report from Study
  Country: US (occurrence: US)
  Receive Date: 20231224
  Receipt Date: 20231224
  Transmission Date: 20240110
  Serious: Yes (Hospitalization, Other)
  Sender: FDA-Public Use
  Company Number: US-AUROBINDO-AUR-APL-2023-079137

PATIENT
  Age: 40 Year
  Sex: Female

DRUGS (2)
  1. CYCLOPHOSPHAMIDE [Suspect]
     Active Substance: CYCLOPHOSPHAMIDE
     Indication: Autoimmune disorder
     Dosage: 1000 MILLIGRAM/SQ. METER, 3 TIMES A DAY (300MG ALIQUOTS EVERY 8H)
     Route: 042
  2. METHYLPREDNISOLONE [Suspect]
     Active Substance: METHYLPREDNISOLONE
     Indication: Autoimmune disorder
     Dosage: UNK
     Route: 042

REACTIONS (1)
  - Febrile neutropenia [Unknown]
